FAERS Safety Report 8595448-8 (Version None)
Quarter: 2012Q3

REPORT INFORMATION
  Report Type: 
  Country: None (occurrence: None)
  Receive Date: 20120815
  Receipt Date: 20120725
  Transmission Date: 20120928
  Serious: No
  Sender: FDA-Public Use
  Company Number: US-BRISTOL-MYERS SQUIBB COMPANY-16802696

PATIENT
  Age: 85 Year
  Sex: Female

DRUGS (5)
  1. LOSARTAN POTASSIUM [Concomitant]
  2. ATENOLOL [Concomitant]
  3. GLIPIZIDE [Concomitant]
     Dosage: GLIPIZIDE XL
  4. SYNTHROID [Concomitant]
  5. ONGLYZA [Suspect]

REACTIONS (5)
  - GAIT DISTURBANCE [None]
  - MUSCLE SPASMS [None]
  - MUSCULOSKELETAL CHEST PAIN [None]
  - MYALGIA [None]
  - ASTHENIA [None]
